FAERS Safety Report 18200654 (Version 5)
Quarter: 2020Q4

REPORT INFORMATION
  Report Type: Report from Study
  Country: BR (occurrence: BR)
  Receive Date: 20200827
  Receipt Date: 20201126
  Transmission Date: 20210113
  Serious: No
  Sender: FDA-Public Use
  Company Number: BR-ROCHE-2662522

PATIENT
  Age: 63 Year
  Sex: Female
  Weight: 66.25 kg

DRUGS (9)
  1. LOPERAMIDE [Concomitant]
     Active Substance: LOPERAMIDE
  2. XL184 [Suspect]
     Active Substance: CABOZANTINIB
     Route: 048
  3. ATEZOLIZUMAB. [Suspect]
     Active Substance: ATEZOLIZUMAB
     Indication: HEPATOCELLULAR CARCINOMA
     Dosage: ON 20/JUL/2020, SHE RECEIVED THE MOST RECENT DOSE OF ATEZOLIZUMAB PRIOR TO ONSET OF THE EVENT.
     Route: 041
     Dates: start: 20200701
  4. INSULIN HUMAN [Concomitant]
     Active Substance: INSULIN HUMAN
  5. NPH INSULIN [Concomitant]
     Active Substance: INSULIN BEEF
  6. XL184 [Suspect]
     Active Substance: CABOZANTINIB
     Indication: HEPATOCELLULAR CARCINOMA
     Dosage: ON 30/JUL/2020, SHE RECEIVED THE MOST RECENT DOSE OF CABOZANTINIB PRIOR TO ONSET OF THE EVENT.
     Route: 048
     Dates: start: 20200701
  7. METFORMIN [Concomitant]
     Active Substance: METFORMIN HYDROCHLORIDE
  8. GLICLAZIDE [Concomitant]
     Active Substance: GLICLAZIDE
  9. TRANEXAMIC ACID. [Concomitant]
     Active Substance: TRANEXAMIC ACID

REACTIONS (1)
  - Drug-induced liver injury [Recovered/Resolved]

NARRATIVE: CASE EVENT DATE: 20200807
